FAERS Safety Report 5735198-6 (Version None)
Quarter: 2008Q2

REPORT INFORMATION
  Report Type: 
  Country: None (occurrence: None)
  Receive Date: 20080512
  Receipt Date: 20080426
  Transmission Date: 20081010
  Serious: Yes (Disabling)
  Sender: FDA-Public Use
  Company Number: JP-ASTRAZENECA-2008AP02588

PATIENT
  Age: 787 Month
  Sex: Male

DRUGS (10)
  1. SEROQUEL [Suspect]
     Indication: SCHIZOPHRENIA
     Route: 048
     Dates: start: 20030917, end: 20071004
  2. RISPERIDONE [Concomitant]
     Indication: SCHIZOPHRENIA
     Route: 048
     Dates: start: 19990501, end: 20030901
  3. RISPERIDONE [Concomitant]
     Route: 048
     Dates: start: 20030901
  4. SOLON [Concomitant]
     Indication: GASTRITIS
     Route: 048
     Dates: start: 20000408
  5. GASMOTIN [Concomitant]
     Indication: GASTRITIS
     Route: 048
     Dates: start: 20000408
  6. MAGNESIUM OXIDE [Concomitant]
     Indication: CONSTIPATION
     Route: 048
     Dates: start: 20000408
  7. FERO GRADUMET [Concomitant]
     Indication: ANAEMIA
     Route: 048
     Dates: start: 20000408
  8. SHINLUCK [Concomitant]
     Indication: CONSTIPATION
     Route: 048
     Dates: start: 20000408
  9. DEPAS [Concomitant]
     Indication: SCHIZOPHRENIA
     Route: 048
     Dates: start: 20000408
  10. SILECE [Concomitant]
     Indication: SCHIZOPHRENIA
     Route: 048
     Dates: start: 20000408

REACTIONS (1)
  - NEUTROPHIL COUNT DECREASED [None]
